FAERS Safety Report 7445650-3 (Version None)
Quarter: 2011Q2

REPORT INFORMATION
  Report Type: 
  Country: None (occurrence: None)
  Receive Date: 20110429
  Receipt Date: 20110425
  Transmission Date: 20111010
  Serious: Yes (Life-Threatening, Hospitalization)
  Sender: FDA-Public Use
  Company Number: US-ASTRAZENECA-2011SE23671

PATIENT
  Age: 62 Year
  Sex: Male
  Weight: 90 kg

DRUGS (3)
  1. ZD6474 [Suspect]
     Indication: GLIOBLASTOMA
     Route: 048
     Dates: start: 20110223, end: 20110415
  2. RADIATION THERAPY [Suspect]
     Indication: GLIOBLASTOMA
     Dosage: DAILY
     Route: 065
     Dates: start: 20110301
  3. TEMOZOLOMIDE [Suspect]
     Indication: GLIOBLASTOMA
     Route: 048
     Dates: start: 20110301

REACTIONS (1)
  - INTESTINAL PERFORATION [None]
